FAERS Safety Report 5269289-3 (Version None)
Quarter: 2007Q1

REPORT INFORMATION
  Report Type: 
  Country: None (occurrence: None)
  Receive Date: 20070319
  Receipt Date: 20070307
  Transmission Date: 20070707
  Serious: Yes (Other)
  Sender: FDA-Public Use
  Company Number: US-PFIZER INC-2007004490

PATIENT
  Sex: Female

DRUGS (24)
  1. CHANTIX [Suspect]
  2. TRICOR [Concomitant]
     Dosage: DAILY DOSE:145MG
     Route: 048
  3. MICROZIDE [Concomitant]
     Dosage: DAILY DOSE:25MG
     Route: 048
     Dates: start: 20070124
  4. ATENOLOL [Concomitant]
     Dates: start: 20070124
  5. SINGULAIR [Concomitant]
     Dosage: DAILY DOSE:10MG
     Dates: start: 20061208
  6. QUINAPRIL HCL [Concomitant]
     Dosage: DAILY DOSE:40MG
     Dates: start: 20061122
  7. LIPITOR [Concomitant]
     Dosage: DAILY DOSE:80MG
     Dates: start: 20061106
  8. EFFEXOR [Concomitant]
     Dates: start: 20061106
  9. ALLEGRA [Concomitant]
     Dates: start: 20061106
  10. ZETIA [Concomitant]
     Dosage: DAILY DOSE:10MG
     Dates: start: 20061012
  11. NIASPAN [Concomitant]
     Dates: start: 20061012
  12. ELIDEL [Concomitant]
     Dates: start: 20060921
  13. GLUCOPHAGE XR [Concomitant]
     Dates: start: 20060818
  14. NASONEX [Concomitant]
     Dosage: DAILY DOSE:100MCG
     Dates: start: 20060504
  15. ASTELIN [Concomitant]
     Route: 045
     Dates: start: 20060504
  16. ATROVENT [Concomitant]
     Indication: RHINITIS
     Route: 045
     Dates: start: 20060123
  17. XANAX [Concomitant]
     Indication: ANXIETY
     Dates: start: 20050523
  18. ALBUTEROL [Concomitant]
     Dates: start: 20041208
  19. NYSTATIN [Concomitant]
     Dates: start: 20040802
  20. NAPRELAN [Concomitant]
     Dates: start: 20031201
  21. KETOROLAC TROMETHAMINE [Concomitant]
     Dates: start: 20030501
  22. ACETYLSALICYLIC ACID SRT [Concomitant]
     Dates: start: 20021001
  23. HYCODAN [Concomitant]
     Dates: start: 20060705
  24. VICODIN ES [Concomitant]
     Dates: start: 20060504

REACTIONS (20)
  - ALANINE AMINOTRANSFERASE INCREASED [None]
  - ASPARTATE AMINOTRANSFERASE INCREASED [None]
  - BACK PAIN [None]
  - BRONCHITIS [None]
  - CARPAL TUNNEL SYNDROME [None]
  - CONNECTIVE TISSUE DISORDER [None]
  - COUGH [None]
  - HEPATITIS [None]
  - HYPERLIPIDAEMIA [None]
  - HYPERSENSITIVITY [None]
  - INTERVERTEBRAL DISC DEGENERATION [None]
  - OSTEOARTHRITIS [None]
  - PERIPHERAL VASCULAR DISORDER [None]
  - PSORIASIS [None]
  - RHINITIS ALLERGIC [None]
  - ROTATOR CUFF SYNDROME [None]
  - SCOLIOSIS [None]
  - SINUSITIS [None]
  - SKIN DISORDER [None]
  - SPINAL COLUMN STENOSIS [None]
